FAERS Safety Report 8451521-6 (Version None)
Quarter: 2012Q2

REPORT INFORMATION
  Report Type: 
  Country: None (occurrence: None)
  Receive Date: 20120620
  Receipt Date: 20120306
  Transmission Date: 20120825
  Serious: No
  Sender: FDA-Public Use
  Company Number: US-VERTEX PHARMACEUTICALS INC.-AE-2012-003225

PATIENT
  Sex: Male
  Weight: 104.42 kg

DRUGS (13)
  1. LANTUS [Concomitant]
     Indication: DIABETES MELLITUS
     Route: 058
  2. LISINOPRIL [Concomitant]
     Indication: DIABETES MELLITUS
     Route: 048
  3. ASCORBIC ACID [Concomitant]
     Route: 048
  4. ASPIRIN [Concomitant]
     Indication: DIABETES MELLITUS
     Route: 048
  5. PEGASYS [Concomitant]
     Indication: HEPATITIS C
     Route: 058
     Dates: start: 20120304
  6. TRUVADA [Concomitant]
     Indication: HIV INFECTION
     Route: 048
  7. FERROUS SULFATE TAB [Concomitant]
     Route: 048
  8. UNKNOWN ANTIINFLAMATORY [Concomitant]
     Indication: ARTHRALGIA
  9. INCIVEK [Suspect]
     Indication: HEPATITIS C
     Route: 048
     Dates: start: 20120304
  10. ISENTRESS [Concomitant]
     Indication: HIV INFECTION
     Route: 048
  11. VITAMIN D [Concomitant]
     Route: 048
  12. OMEPRAZOLE [Concomitant]
     Indication: ULCER
     Route: 048
  13. RIBAVIRIN [Concomitant]
     Indication: HEPATITIS C
     Route: 048
     Dates: start: 20120304

REACTIONS (3)
  - ARTHRALGIA [None]
  - BONE PAIN [None]
  - HEADACHE [None]
